FAERS Safety Report 8451528 (Version 2)
Quarter: 2012Q4

REPORT INFORMATION
  Report Type: 
  Country: US (occurrence: US)
  Receive Date: 20120309
  Receipt Date: 20121115
  Transmission Date: 20130627
  Serious: Yes (Other)
  Sender: FDA-Public Use
  Company Number: US-ELI_LILLY_AND_COMPANY-US201202005131

PATIENT
  Age: 59 Year
  Sex: Male

DRUGS (2)
  1. ADCIRCA [Suspect]
     Dosage: 1 DF, UNK
  2. LETAIRIS [Concomitant]
     Indication: PULMONARY HYPERTENSION
     Dosage: 10 mg, UNK
     Route: 048
     Dates: start: 20120131, end: 20120202

REACTIONS (7)
  - Visual impairment [Recovered/Resolved]
  - Palpitations [Recovered/Resolved]
  - Chromaturia [Recovered/Resolved]
  - Fatigue [Recovered/Resolved]
  - Insomnia [Recovered/Resolved]
  - Epistaxis [Recovered/Resolved]
  - Headache [Recovered/Resolved]
